FAERS Safety Report 15644465 (Version 1)
Quarter: 2018Q4

REPORT INFORMATION
  Report Type: Spontaneous
  Country: US (occurrence: US)
  Receive Date: 20181121
  Receipt Date: 20181121
  Transmission Date: 20190205
  Serious: Yes (Death)
  Sender: FDA-Public Use
  Company Number: None

PATIENT
  Sex: Female

DRUGS (14)
  1. FORTEO [Suspect]
     Active Substance: TERIPARATIDE
     Indication: SPONDYLOARTHROPATHY
     Dosage: ?          OTHER FREQUENCY:QD AS DIRECTED;?
     Route: 058
     Dates: start: 20180221
  2. SPIRONOLACT [Concomitant]
     Active Substance: SPIRONOLACTONE
  3. LEVETIRACETA [Concomitant]
  4. ENOXAPARIM [Concomitant]
  5. SERTRALINE [Concomitant]
     Active Substance: SERTRALINE HYDROCHLORIDE
  6. OMEPRAZOLE. [Concomitant]
     Active Substance: OMEPRAZOLE
  7. INSULIN [Concomitant]
     Active Substance: INSULIN NOS
  8. CALCITONIN [Concomitant]
     Active Substance: CALCITONIN
  9. NOVOLOG [Concomitant]
     Active Substance: INSULIN ASPART
  10. SYNTHROID [Concomitant]
     Active Substance: LEVOTHYROXINE SODIUM
  11. POT CHLORIDE [Concomitant]
     Active Substance: POTASSIUM CHLORIDE
  12. DILTIAZEM. [Concomitant]
     Active Substance: DILTIAZEM
  13. LANTUS [Concomitant]
     Active Substance: INSULIN GLARGINE
  14. LIOTHRONINE [Concomitant]

REACTIONS (1)
  - Death [None]
